FAERS Safety Report 5302858-0 (Version None)
Quarter: 2007Q2

REPORT INFORMATION
  Report Type: 
  Country: None (occurrence: None)
  Receive Date: 20070419
  Receipt Date: 20070419
  Transmission Date: 20071010
  Serious: Yes (Hospitalization)
  Sender: FDA-Public Use
  Company Number: None

PATIENT
  Age: 53 Year
  Sex: Male
  Weight: 70 kg

DRUGS (9)
  1. DOXYCYCLINE [Suspect]
     Indication: VIRAL INFECTION
     Dates: start: 20061207, end: 20061214
  2. REGLAN [Concomitant]
  3. SYNTHROID [Concomitant]
  4. CELEXA [Concomitant]
  5. KLONOPIN [Concomitant]
  6. COLACE [Concomitant]
  7. NEXIUM [Concomitant]
  8. TOPROL-XL [Concomitant]
  9. ZYPREXA [Concomitant]

REACTIONS (4)
  - DISSEMINATED INTRAVASCULAR COAGULATION [None]
  - HAEMOLYTIC ANAEMIA [None]
  - RASH [None]
  - RETCHING [None]
